FAERS Safety Report 6716283-9 (Version None)
Quarter: 2010Q2

REPORT INFORMATION
  Report Type: 
  Country: None (occurrence: None)
  Receive Date: 20100506
  Receipt Date: 20100506
  Transmission Date: 20101027
  Serious: Yes (Other)
  Sender: FDA-Public Use
  Company Number: None

PATIENT
  Age: 43 Year
  Sex: Female
  Weight: 51.7101 kg

DRUGS (1)
  1. NAFCILLIN [Suspect]
     Indication: POST PROCEDURAL INFECTION
     Dosage: 2 GRAMS EVERY 4 HOURS IV DRIP
     Route: 041
     Dates: start: 20100331, end: 20100407

REACTIONS (4)
  - HYPOKALAEMIA [None]
  - NAUSEA [None]
  - RASH GENERALISED [None]
  - VOMITING [None]
